FAERS Safety Report 8168655-6 (Version None)
Quarter: 2012Q1

REPORT INFORMATION
  Report Type: 
  Country: None (occurrence: None)
  Receive Date: 20120227
  Receipt Date: 20120215
  Transmission Date: 20120608
  Serious: Yes (Hospitalization, Other)
  Sender: FDA-Public Use
  Company Number: DE-ELI_LILLY_AND_COMPANY-DE201202004594

PATIENT
  Age: 86 Year
  Sex: Male

DRUGS (6)
  1. FORTEO [Suspect]
     Indication: OSTEOPOROSIS
     Dosage: UNK, QD
     Route: 058
     Dates: start: 20110517, end: 20120101
  2. CALCIUM [Concomitant]
  3. VITAMIN D [Concomitant]
  4. FORTEO [Suspect]
     Dosage: UNK, QD
     Route: 058
  5. ANALGESICS [Concomitant]
  6. TEBONIN [Concomitant]

REACTIONS (3)
  - HOSPITALISATION [None]
  - INJECTION SITE PAIN [None]
  - INGUINAL HERNIA [None]
